FAERS Safety Report 6821522-X (Version None)
Quarter: 2010Q3

REPORT INFORMATION
  Report Type: 
  Country: None (occurrence: None)
  Receive Date: 20100707
  Receipt Date: 20100623
  Transmission Date: 20110219
  Serious: Yes (Death, Other)
  Sender: FDA-Public Use
  Company Number: JP-ROCHE-712092

PATIENT
  Age: 9 Year
  Sex: Female

DRUGS (2)
  1. AVASTIN [Suspect]
     Indication: BRAIN STEM GLIOMA
     Dosage: NOTE: DOSAGE IS UNCERTAIN
     Route: 041
  2. IRINOTECAN HYDROCHLORIDE [Concomitant]
     Dosage: NOTE: DOSAGE IS UNCERTAIN
     Route: 041

REACTIONS (3)
  - DISEASE PROGRESSION [None]
  - LYMPHOPENIA [None]
  - REVERSIBLE POSTERIOR LEUKOENCEPHALOPATHY SYNDROME [None]
